FAERS Safety Report 5634663-X (Version None)
Quarter: 2008Q1

REPORT INFORMATION
  Report Type: 
  Country: None (occurrence: None)
  Receive Date: 20080222
  Receipt Date: 20080210
  Transmission Date: 20080703
  Serious: Yes (Other)
  Sender: FDA-Public Use
  Company Number: US-BAYER-200810601BCC

PATIENT
  Age: 25 Year
  Sex: Male
  Weight: 98 kg

DRUGS (1)
  1. ALEVE [Suspect]
     Indication: ARTHRALGIA
     Dosage: UNIT DOSE: 220 MG
     Route: 048
     Dates: start: 20080210

REACTIONS (5)
  - CHEST PAIN [None]
  - DIARRHOEA [None]
  - GASTROENTERITIS VIRAL [None]
  - PAIN IN EXTREMITY [None]
  - VOMITING [None]
